FAERS Safety Report 18734939 (Version 1)
Quarter: 2021Q1

REPORT INFORMATION
  Report Type: Spontaneous
  Country: US (occurrence: US)
  Receive Date: 20210113
  Receipt Date: 20210113
  Transmission Date: 20210419
  Serious: Yes (Other)
  Sender: FDA-Public Use
  Company Number: US-MYLANLABS-2021M1001500

PATIENT
  Age: 57 Year
  Sex: Male

DRUGS (1)
  1. PREDNISONE. [Suspect]
     Active Substance: PREDNISONE
     Indication: CRANIAL NERVE DISORDER
     Dosage: 20 MILLIGRAM, QD
     Route: 048
     Dates: start: 2019, end: 2019

REACTIONS (1)
  - Rebound effect [Recovering/Resolving]

NARRATIVE: CASE EVENT DATE: 2019
